FAERS Safety Report 15366920 (Version 1)
Quarter: 2018Q4

REPORT INFORMATION
  Report Type: Spontaneous
  Country: DE (occurrence: DE)
  Receive Date: 20180910
  Receipt Date: 20180910
  Transmission Date: 20190204
  Serious: Yes (Other)
  Sender: FDA-Public Use
  Company Number: DE-PFIZER INC-2018359576

PATIENT
  Age: 50 Year
  Sex: Female

DRUGS (2)
  1. TAVOR (LORAZEPAM) [Suspect]
     Active Substance: LORAZEPAM
     Dosage: 5 MG, DAILY
  2. TAVOR (LORAZEPAM) [Suspect]
     Active Substance: LORAZEPAM
     Dosage: UNK

REACTIONS (1)
  - Angina pectoris [Unknown]
